FAERS Safety Report 22298178 (Version 1)
Quarter: 2023Q2

REPORT INFORMATION
  Report Type: Spontaneous
  Country: US (occurrence: US)
  Receive Date: 20230509
  Receipt Date: 20230509
  Transmission Date: 20230721
  Serious: Yes (Hospitalization)
  Sender: FDA-Public Use
  Company Number: US-MYLANLABS-2023M1047214

PATIENT
  Age: 28 Year
  Sex: Female

DRUGS (22)
  1. HEPARIN [Suspect]
     Active Substance: HEPARIN SODIUM
     Indication: Thrombosis prophylaxis
     Dosage: UNK (1000 UNITS/H ADMINISTERED UPTO REPERFUSION OF GRAFT)
     Route: 042
  2. HEPARIN [Suspect]
     Active Substance: HEPARIN SODIUM
     Dosage: 2000 INTERNATIONAL UNIT (ADDITIONAL DOSE AT ONSET OF STAGE II)
     Route: 042
  3. EPOPROSTENOL [Suspect]
     Active Substance: EPOPROSTENOL
     Indication: Portopulmonary hypertension
     Dosage: UNK (AT 15 MONTHS PRETRANSPLANT; TITRATED UP TO 10-12 NG/KG/MIN)
     Route: 042
  4. EPOPROSTENOL [Suspect]
     Active Substance: EPOPROSTENOL
     Indication: Right ventricular dysfunction
     Dosage: UNK, (AT 14 MONTHS PRETRANSPLANT; 11 NG/KG/MIN)
     Route: 042
  5. EPOPROSTENOL [Suspect]
     Active Substance: EPOPROSTENOL
     Dosage: UNK, AT 12 MONTHS PRETRANSPLANT; 12 NG/KG/MIN
     Route: 042
  6. EPOPROSTENOL [Suspect]
     Active Substance: EPOPROSTENOL
     Dosage: UNK, INTRAOPERATIVELY; 6-24 NG/KG/MIN
     Route: 042
  7. NITRIC OXIDE [Suspect]
     Active Substance: NITRIC OXIDE
     Indication: Portopulmonary hypertension
     Dosage: UNK, 10-60 PPM
     Route: 045
  8. NITRIC OXIDE [Suspect]
     Active Substance: NITRIC OXIDE
     Indication: Right ventricular dysfunction
     Dosage: UNK, THERAPY CONTINUED THEN WEANED OFF
     Route: 045
  9. SILDENAFIL [Concomitant]
     Active Substance: SILDENAFIL
     Indication: Portopulmonary hypertension
     Dosage: 30 MILLIGRAM, TID, 30MG, 3 TIMES A DAY; AT 20 MONTHS PRETRANSPLANT, CONCOMITANT.....
     Route: 048
  10. SILDENAFIL [Concomitant]
     Active Substance: SILDENAFIL
     Indication: Portopulmonary hypertension
     Dosage: 10MG X 2 ; INTRAOPERATIVELY CONCOMITANT TO NITRIC OXIDE AND EPOPROSTENOL
     Route: 042
  11. SILDENAFIL [Concomitant]
     Active Substance: SILDENAFIL
     Indication: Right ventricular dysfunction
  12. TREPROSTINIL [Concomitant]
     Active Substance: TREPROSTINIL
     Indication: Portopulmonary hypertension
     Dosage: UNK (AT 20 MONTHS PRETRANSPLANT, CONCOMITANT TO MACITENTAN)
     Route: 045
  13. MILRINONE [Concomitant]
     Active Substance: MILRINONE
     Indication: Right ventricular dysfunction
     Dosage: UNK, 0.25-0.5 MCG/KG/MIN; INTRAOPERATIVELY WITH EPOPROSTENOL, NITRIC OXIDE
     Route: 065
  14. EPINEPHRINE [Concomitant]
     Active Substance: EPINEPHRINE
     Indication: Mean arterial pressure increased
     Dosage: UNK (0.01-0.04 MCG/KG/MIN)
     Route: 065
  15. EPINEPHRINE [Concomitant]
     Active Substance: EPINEPHRINE
     Dosage: UNK, THERAPY CONTINUED, LATER WEANED OFF
     Route: 065
  16. NOREPINEPHRINE [Concomitant]
     Active Substance: NOREPINEPHRINE
     Indication: Mean arterial pressure increased
     Dosage: UNK (0.04-0.06 MCG/KG/MIN)
     Route: 065
  17. NOREPINEPHRINE [Concomitant]
     Active Substance: NOREPINEPHRINE
     Dosage: UNK (THERAPY CONTINUED, LATER WEANED OFF  )
     Route: 065
  18. VASOPRESSIN [Concomitant]
     Active Substance: VASOPRESSIN
     Indication: Mean arterial pressure increased
     Dosage: UNK (0.04-0.12 UNITS)
     Route: 065
  19. VASOPRESSIN [Concomitant]
     Active Substance: VASOPRESSIN
     Dosage: UNK (THERAPY CONTINUED, LATER WEANED OFF  )
     Route: 065
  20. ESMOLOL [Concomitant]
     Active Substance: ESMOLOL HYDROCHLORIDE
     Indication: Sinus tachycardia
     Dosage: UNK, 0.4-1.1 MCG/KG/MIN
     Route: 042
  21. EPSILON AMINOCAPROIC ACID [Concomitant]
     Indication: Procoagulant therapy
     Dosage: UNK (INITIATED JUST PRIOR TO REPERFUSION)
     Route: 042
  22. METHYLPREDNISOLONE [Concomitant]
     Active Substance: METHYLPREDNISOLONE
     Indication: Immunosuppressant drug therapy
     Dosage: 500 MILLIGRAM (INTRAOPERATIVE)
     Route: 042

REACTIONS (2)
  - Coagulopathy [Recovering/Resolving]
  - Procedural complication [Recovering/Resolving]
